FAERS Safety Report 11272352 (Version 2)
Quarter: 2015Q4

REPORT INFORMATION
  Report Type: Report from Study
  Country: US (occurrence: US)
  Receive Date: 20150715
  Receipt Date: 20151008
  Transmission Date: 20160304
  Serious: Yes (Hospitalization, Other)
  Sender: FDA-Public Use
  Company Number: US-BIOGENIDEC-2015BI096742

PATIENT
  Age: 67 Year
  Sex: Female

DRUGS (1)
  1. AVONEX [Suspect]
     Active Substance: INTERFERON BETA-1A
     Indication: MULTIPLE SCLEROSIS
     Route: 030
     Dates: start: 19990618

REACTIONS (5)
  - Skin exfoliation [Recovered/Resolved]
  - Invasive breast carcinoma [Recovered/Resolved]
  - Pain of skin [Recovered/Resolved]
  - Lesion excision [Recovered/Resolved]
  - Skin induration [Recovered/Resolved]

NARRATIVE: CASE EVENT DATE: 20130101
